FAERS Safety Report 25721561 (Version 1)
Quarter: 2025Q3

REPORT INFORMATION
  Report Type: Spontaneous
  Country: US (occurrence: US)
  Receive Date: 20250825
  Receipt Date: 20250825
  Transmission Date: 20251020
  Serious: Yes (Other)
  Sender: MYLAN
  Company Number: US-MYLANLABS-2025M1070650

PATIENT
  Sex: Female

DRUGS (4)
  1. ESTRADIOL TRANSDERMAL SYSTEM [Suspect]
     Active Substance: ESTRADIOL
     Indication: Product used for unknown indication
     Dosage: 0.1 MILLIGRAM, QD (PER DAY, TWICE WEEKLY; WORN FOR THREE DAYS, THEN REPLACED AND WORN FOR FOUR DAYS)
  2. ESTRADIOL TRANSDERMAL SYSTEM [Suspect]
     Active Substance: ESTRADIOL
     Dosage: 0.1 MILLIGRAM, QD (PER DAY, TWICE WEEKLY; WORN FOR THREE DAYS, THEN REPLACED AND WORN FOR FOUR DAYS)
     Route: 062
  3. ESTRADIOL TRANSDERMAL SYSTEM [Suspect]
     Active Substance: ESTRADIOL
     Dosage: 0.1 MILLIGRAM, QD (PER DAY, TWICE WEEKLY; WORN FOR THREE DAYS, THEN REPLACED AND WORN FOR FOUR DAYS)
     Route: 062
  4. ESTRADIOL TRANSDERMAL SYSTEM [Suspect]
     Active Substance: ESTRADIOL
     Dosage: 0.1 MILLIGRAM, QD (PER DAY, TWICE WEEKLY; WORN FOR THREE DAYS, THEN REPLACED AND WORN FOR FOUR DAYS)

REACTIONS (4)
  - Postmenopausal haemorrhage [Unknown]
  - Dysmenorrhoea [Unknown]
  - Drug ineffective [Unknown]
  - Wrong technique in product usage process [Unknown]
